FAERS Safety Report 5464705-6 (Version None)
Quarter: 2007Q3

REPORT INFORMATION
  Report Type: 
  Country: None (occurrence: None)
  Receive Date: 20070921
  Receipt Date: 20070910
  Transmission Date: 20080115
  Serious: Yes (Other)
  Sender: FDA-Public Use
  Company Number: US-PFIZER INC-2007042803

PATIENT
  Sex: Female
  Weight: 52.2 kg

DRUGS (6)
  1. XALATAN [Suspect]
     Indication: OPEN ANGLE GLAUCOMA
     Route: 047
  2. WARFARIN SODIUM [Concomitant]
  3. LISINOPRIL [Concomitant]
  4. ACYCLOVIR [Concomitant]
  5. TOPROL-XL [Concomitant]
  6. ASPIRIN [Concomitant]

REACTIONS (5)
  - APPLICATION SITE IRRITATION [None]
  - EYE IRRITATION [None]
  - HERPES ZOSTER [None]
  - SCAR [None]
  - TRABECULECTOMY [None]
